FAERS Safety Report 16475017 (Version 1)
Quarter: 2019Q2

REPORT INFORMATION
  Report Type: Spontaneous
  Country: US (occurrence: US)
  Receive Date: 20190625
  Receipt Date: 20190625
  Transmission Date: 20190711
  Serious: Yes (Other)
  Sender: FDA-Public Use
  Company Number: US-FOUNDATIONCONSUMERHC-2019-US-011435

PATIENT
  Sex: Female

DRUGS (1)
  1. PLAN B ONE-STEP [Suspect]
     Active Substance: LEVONORGESTREL
     Indication: POST COITAL CONTRACEPTION
     Route: 048

REACTIONS (6)
  - Drug ineffective [Unknown]
  - Exposure during pregnancy [Recovered/Resolved]
  - Uterine disorder [Unknown]
  - Pregnancy after post coital contraception [Unknown]
  - Vaginal haemorrhage [Unknown]
  - Abortion spontaneous [Unknown]
